FAERS Safety Report 7272643-1 (Version None)
Quarter: 2011Q1

REPORT INFORMATION
  Report Type: 
  Country: None (occurrence: None)
  Receive Date: 20110203
  Receipt Date: 20110125
  Transmission Date: 20110831
  Serious: Yes (Hospitalization)
  Sender: FDA-Public Use
  Company Number: JP-ASTRAZENECA-2011SE05220

PATIENT
  Age: 30546 Day
  Sex: Female

DRUGS (4)
  1. BLOPRESS [Suspect]
     Route: 048
  2. PANTORC [Concomitant]
     Route: 048
  3. BLOPRESS [Suspect]
     Indication: HYPERTENSION
     Route: 048
     Dates: start: 19990124
  4. ASPIRIN [Concomitant]
     Route: 048

REACTIONS (2)
  - LOSS OF CONSCIOUSNESS [None]
  - SYNCOPE [None]
